FAERS Safety Report 6417172-X (Version None)
Quarter: 2009Q4

REPORT INFORMATION
  Report Type: 
  Country: None (occurrence: None)
  Receive Date: 20091028
  Receipt Date: 20091019
  Transmission Date: 20100525
  Serious: Yes (Hospitalization)
  Sender: FDA-Public Use
  Company Number: US-JNJFOC-20091006732

PATIENT
  Sex: Male
  Weight: 106.6 kg

DRUGS (2)
  1. DURAGESIC-100 [Suspect]
     Route: 062
  2. DURAGESIC-100 [Suspect]
     Indication: BACK PAIN
     Route: 062

REACTIONS (5)
  - ARTHRALGIA [None]
  - BACK PAIN [None]
  - INADEQUATE ANALGESIA [None]
  - JOINT INJURY [None]
  - PAIN IN EXTREMITY [None]
